FAERS Safety Report 8241877-1 (Version None)
Quarter: 2012Q1

REPORT INFORMATION
  Report Type: 
  Country: None (occurrence: None)
  Receive Date: 20120328
  Receipt Date: 20120315
  Transmission Date: 20120608
  Serious: Yes (Hospitalization)
  Sender: FDA-Public Use
  Company Number: US-ACTELION-A-NJ2011-58293

PATIENT

DRUGS (2)
  1. TRACLEER [Suspect]
     Indication: PULMONARY ARTERIAL HYPERTENSION
     Dosage: UNK
     Route: 048
     Dates: start: 20111123
  2. COUMADIN [Concomitant]

REACTIONS (15)
  - SLEEP APNOEA SYNDROME [None]
  - CARDIAC FAILURE CONGESTIVE [None]
  - PULMONARY ARTERIAL HYPERTENSION [None]
  - CARBON DIOXIDE INCREASED [None]
  - HYPERTENSION [None]
  - ABDOMINAL DISTENSION [None]
  - RESPIRATORY DISTRESS [None]
  - CONVULSION [None]
  - FLUID RETENTION [None]
  - CHRONIC OBSTRUCTIVE PULMONARY DISEASE [None]
  - HYPOXIA [None]
  - DYSPNOEA [None]
  - SWELLING [None]
  - ANXIETY [None]
  - DEPRESSION [None]
